FAERS Safety Report 11324333 (Version 1)
Quarter: 2015Q3

REPORT INFORMATION
  Report Type: Spontaneous
  Country: GB (occurrence: GB)
  Receive Date: 20150730
  Receipt Date: 20150730
  Transmission Date: 20151125
  Serious: Yes (Other)
  Sender: FDA-Public Use
  Company Number: GB-ACTELION-A-CH2015-121290

PATIENT
  Age: 26 Year
  Sex: Female
  Weight: 72 kg

DRUGS (9)
  1. RAMIPRIL. [Concomitant]
     Active Substance: RAMIPRIL
  2. CAPTOPRIL. [Concomitant]
     Active Substance: CAPTOPRIL
  3. NSAID^S [Concomitant]
     Active Substance: UNSPECIFIED INGREDIENT
  4. PROTON PUMP INHIBITORS [Concomitant]
     Active Substance: UNSPECIFIED INGREDIENT
  5. ZANTAC [Concomitant]
     Active Substance: RANITIDINE HYDROCHLORIDE
  6. HYDROXYCHLOROQUINE [Concomitant]
     Active Substance: HYDROXYCHLOROQUINE
  7. CORTICOSTEROIDS [Concomitant]
     Active Substance: CORTICOSTEROID NOS
  8. SILDENAFIL. [Concomitant]
     Active Substance: SILDENAFIL
  9. TRACLEER [Suspect]
     Active Substance: BOSENTAN
     Indication: SYSTEMIC SCLEROSIS
     Dosage: 62.5 MG, BID
     Route: 048
     Dates: start: 20150703, end: 20150709

REACTIONS (6)
  - Skin tightness [Not Recovered/Not Resolved]
  - Dry skin [Not Recovered/Not Resolved]
  - Eye pruritus [Not Recovered/Not Resolved]
  - Anaphylactic reaction [Not Recovered/Not Resolved]
  - Erythema [Not Recovered/Not Resolved]
  - Skin burning sensation [Not Recovered/Not Resolved]

NARRATIVE: CASE EVENT DATE: 20150703
